FAERS Safety Report 15962646 (Version 4)
Quarter: 2019Q1

REPORT INFORMATION
  Report Type: Spontaneous
  Country: ES (occurrence: ES)
  Receive Date: 20190214
  Receipt Date: 20190328
  Transmission Date: 20190417
  Serious: Yes (Death, Hospitalization)
  Sender: FDA-Public Use
  Company Number: PHHY2019ES032669

PATIENT
  Age: 48 Year
  Sex: Female

DRUGS (11)
  1. MYCOPHENOLATE [Suspect]
     Active Substance: MYCOPHENOLIC ACID
     Indication: GRAFT VERSUS HOST DISEASE
     Dosage: 1500 UNK, Q12H
     Route: 065
  2. NIVOLUMAB [Suspect]
     Active Substance: NIVOLUMAB
     Indication: HODGKIN^S DISEASE
     Dosage: 3 MG/KG, Q3W
     Route: 042
     Dates: start: 201510, end: 201601
  3. FLUDARABINE [Concomitant]
     Active Substance: FLUDARABINE PHOSPHATE
     Indication: HODGKIN^S DISEASE
  4. METHOTREXATE. [Suspect]
     Active Substance: METHOTREXATE
     Indication: STEM CELL TRANSPLANT
     Dosage: LOW DOSE
     Route: 065
  5. METHOTREXATE. [Suspect]
     Active Substance: METHOTREXATE
     Indication: PROPHYLAXIS AGAINST GRAFT VERSUS HOST DISEASE
  6. MELPHALAN. [Concomitant]
     Active Substance: MELPHALAN
     Indication: HODGKIN^S DISEASE
  7. TACROLIMUS. [Suspect]
     Active Substance: TACROLIMUS
     Indication: STEM CELL TRANSPLANT
     Route: 065
  8. TACROLIMUS. [Suspect]
     Active Substance: TACROLIMUS
     Indication: PROPHYLAXIS AGAINST GRAFT VERSUS HOST DISEASE
  9. METHYLPREDNISOLONE. [Suspect]
     Active Substance: METHYLPREDNISOLONE
     Indication: GRAFT VERSUS HOST DISEASE
     Dosage: 2 MG/KG, (FIRSTLINE THERAPY. LATER, SECOND LINE METHYLPREDNISOLONE PULSE THERAPY)
     Route: 065
  10. MELPHALAN. [Concomitant]
     Active Substance: MELPHALAN
     Indication: HODGKIN^S DISEASE STAGE IV
     Route: 065
  11. FLUDARABINE [Concomitant]
     Active Substance: FLUDARABINE PHOSPHATE
     Indication: HODGKIN^S DISEASE STAGE IV
     Route: 065

REACTIONS (17)
  - Encephalopathy [Fatal]
  - Thrombocytopenia [Fatal]
  - Pyrexia [Fatal]
  - Dizziness [Fatal]
  - Graft versus host disease in liver [Fatal]
  - Graft versus host disease in gastrointestinal tract [Fatal]
  - Liver function test increased [Fatal]
  - Dermatitis exfoliative generalised [Fatal]
  - Graft versus host disease in skin [Fatal]
  - Graft versus host disease [Fatal]
  - Renal failure [Fatal]
  - Drug ineffective [Fatal]
  - Rash [Fatal]
  - Diarrhoea [Fatal]
  - Therapy non-responder [Unknown]
  - Dyspepsia [Fatal]
  - Product use in unapproved indication [Unknown]
